FAERS Safety Report 5633416-6 (Version None)
Quarter: 2008Q1

REPORT INFORMATION
  Report Type: 
  Country: None (occurrence: None)
  Receive Date: 20080221
  Receipt Date: 20080213
  Transmission Date: 20080703
  Serious: Yes (Hospitalization, Other)
  Sender: FDA-Public Use
  Company Number: US-PFIZER INC-2006116126

PATIENT
  Sex: Male
  Weight: 107 kg

DRUGS (5)
  1. BEXTRA [Suspect]
     Indication: HEADACHE
  2. BEXTRA [Suspect]
     Indication: INFLAMMATION
  3. BEXTRA [Suspect]
     Indication: NECK PAIN
  4. BEXTRA [Suspect]
     Indication: BACK PAIN
  5. BEXTRA [Suspect]
     Indication: OSTEOARTHRITIS

REACTIONS (3)
  - CEREBROVASCULAR ACCIDENT [None]
  - DEPRESSION [None]
  - HEMIPARESIS [None]
